FAERS Safety Report 5580196-9 (Version None)
Quarter: 2008Q1

REPORT INFORMATION
  Report Type: 
  Country: None (occurrence: None)
  Receive Date: 20080103
  Receipt Date: 20071228
  Transmission Date: 20080703
  Serious: Yes (Other)
  Sender: FDA-Public Use
  Company Number: US-ROCHE-538884

PATIENT
  Age: 40 Year
  Sex: Female

DRUGS (3)
  1. PEG-INTERFERON A-2A (RO 25-8310) [Suspect]
     Indication: HEPATITIS C
     Dosage: 180 MCG ON TUESDAY AND 180 MCG ON FRIDAY.
     Route: 065
     Dates: start: 20070928
  2. RIBAVIRIN [Suspect]
     Indication: HEPATITIS C
     Route: 065
     Dates: start: 20070928
  3. NEUPOGEN [Concomitant]
     Dosage: DOSE: 8 SHOTS PER WEEK

REACTIONS (1)
  - BODY TEMPERATURE DECREASED [None]
